FAERS Safety Report 13795391 (Version 1)
Quarter: 2017Q3

REPORT INFORMATION
  Report Type: Report from Study
  Country: US (occurrence: US)
  Receive Date: 20170726
  Receipt Date: 20170726
  Transmission Date: 20171127
  Serious: Yes (Death, Other)
  Sender: FDA-Public Use
  Company Number: US-IPSEN BIOPHARMACEUTICALS, INC.-2017-04015

PATIENT
  Sex: Male

DRUGS (12)
  1. SOMATULINE DEPOT [Suspect]
     Active Substance: LANREOTIDE ACETATE
     Indication: NEUROENDOCRINE TUMOUR
     Dosage: 120 MG
     Route: 065
  2. CARVEDILOL. [Concomitant]
     Active Substance: CARVEDILOL
  3. SOMATULINE DEPOT [Suspect]
     Active Substance: LANREOTIDE ACETATE
     Indication: CARCINOID SYNDROME
  4. PERCOCET [Concomitant]
     Active Substance: ACETAMINOPHEN\OXYCODONE HYDROCHLORIDE
     Dosage: 7.5 MG-325 MG
  5. FUROSEMIDE. [Concomitant]
     Active Substance: FUROSEMIDE
  6. LISINOPRIL. [Concomitant]
     Active Substance: LISINOPRIL
  7. TAMSULOSIN [Concomitant]
     Active Substance: TAMSULOSIN
  8. SIMVASTATIN. [Concomitant]
     Active Substance: SIMVASTATIN
  9. SOMATULINE DEPOT [Suspect]
     Active Substance: LANREOTIDE ACETATE
     Indication: CARCINOID TUMOUR
  10. ASPIRIN. [Concomitant]
     Active Substance: ASPIRIN
  11. BUDESONIDE-FORMOTEROL HFA [Concomitant]
     Dosage: 160 MCG - 4.5 MCG
     Route: 055
  12. FERROUS SULFATE. [Concomitant]
     Active Substance: FERROUS SULFATE

REACTIONS (13)
  - Adenocarcinoma [Unknown]
  - Malnutrition [Unknown]
  - Cachexia [Unknown]
  - General physical health deterioration [Unknown]
  - Death [Fatal]
  - Aortic valve incompetence [Unknown]
  - Pulmonary hypertension [Unknown]
  - Injection site pain [Unknown]
  - Malaise [Unknown]
  - Device difficult to use [Unknown]
  - Asthenia [Unknown]
  - Cardiomyopathy [Unknown]
  - Cardiac failure congestive [Unknown]

NARRATIVE: CASE EVENT DATE: 2016
